FAERS Safety Report 6236295-1 (Version None)
Quarter: 2009Q2

REPORT INFORMATION
  Report Type: 
  Country: None (occurrence: None)
  Receive Date: 20090619
  Receipt Date: 20090611
  Transmission Date: 20091009
  Serious: Yes (Other)
  Sender: FDA-Public Use
  Company Number: FR-ASTRAZENECA-2009CG00808

PATIENT
  Age: 584 Month
  Sex: Female
  Weight: 38 kg

DRUGS (4)
  1. NEXIUM [Suspect]
     Route: 048
  2. QUESTRAN [Suspect]
     Route: 048
  3. EUROBIOL [Concomitant]
     Dates: start: 20080201
  4. DIFFU-K [Concomitant]
     Dates: start: 20080201

REACTIONS (1)
  - TOXIC SKIN ERUPTION [None]
